FAERS Safety Report 12599266 (Version 1)
Quarter: 2016Q3

REPORT INFORMATION
  Report Type: Report from Study
  Country: CA (occurrence: CA)
  Receive Date: 20160727
  Receipt Date: 20160727
  Transmission Date: 20161109
  Serious: Yes (Other)
  Sender: FDA-Public Use
  Company Number: CA-JNJFOC-20160717918

PATIENT
  Sex: Female
  Weight: 63 kg

DRUGS (2)
  1. REMICADE [Suspect]
     Active Substance: INFLIXIMAB
     Indication: CROHN^S DISEASE
     Route: 042
  2. REMICADE [Suspect]
     Active Substance: INFLIXIMAB
     Indication: CROHN^S DISEASE
     Route: 042
     Dates: start: 20160525

REACTIONS (5)
  - Headache [Unknown]
  - Fistula [Not Recovered/Not Resolved]
  - Rash papular [Recovered/Resolved]
  - Haemorrhage [Not Recovered/Not Resolved]
  - Vulvovaginal dryness [Unknown]

NARRATIVE: CASE EVENT DATE: 2016
